FAERS Safety Report 16840142 (Version 6)
Quarter: 2020Q1

REPORT INFORMATION
  Report Type: Spontaneous
  Country: US (occurrence: US)
  Receive Date: 20190923
  Receipt Date: 20200306
  Transmission Date: 20200409
  Serious: Yes (Other)
  Sender: FDA-Public Use
  Company Number: US-PFIZER INC-2019407317

PATIENT
  Age: 78 Year
  Sex: Female
  Weight: 46.27 kg

DRUGS (2)
  1. MENEST [ESTROGENS CONJUGATED] [Concomitant]
     Indication: HORMONE THERAPY
     Dosage: 65 MG, UNK
  2. XELJANZ XR [Suspect]
     Active Substance: TOFACITINIB CITRATE
     Indication: RHEUMATOID ARTHRITIS
     Dosage: 11 MG, 1X/DAY
     Dates: start: 2017

REACTIONS (7)
  - Weight decreased [Unknown]
  - Appetite disorder [Unknown]
  - Tooth disorder [Unknown]
  - Pain in extremity [Unknown]
  - Thrombosis [Unknown]
  - Ageusia [Unknown]
  - Sinus disorder [Unknown]
